FAERS Safety Report 5316800-X (Version None)
Quarter: 2007Q2

REPORT INFORMATION
  Report Type: 
  Country: None (occurrence: None)
  Receive Date: 20070504
  Receipt Date: 20070425
  Transmission Date: 20071010
  Serious: Yes (Other)
  Sender: FDA-Public Use
  Company Number: GB-JNJFOC-20070405760

PATIENT
  Sex: Female
  Weight: 48 kg

DRUGS (4)
  1. INFLIXIMAB [Suspect]
     Indication: RHEUMATOID ARTHRITIS
     Route: 042
  2. METHOTREXATE [Concomitant]
  3. LOSEC [Concomitant]
  4. VONTROL [Concomitant]

REACTIONS (2)
  - ABORTION INDUCED [None]
  - UNINTENDED PREGNANCY [None]
